FAERS Safety Report 18649999 (Version 1)
Quarter: 2020Q4

REPORT INFORMATION
  Report Type: Spontaneous
  Country: KR (occurrence: KR)
  Receive Date: 20201222
  Receipt Date: 20201222
  Transmission Date: 20210114
  Serious: Yes (Death, Hospitalization, Other)
  Sender: FDA-Public Use
  Company Number: KR-CELGENEUS-KOR-20201205675

PATIENT
  Age: 69 Year
  Sex: Male
  Weight: 62.7 kg

DRUGS (1)
  1. AZACITIDINE. [Suspect]
     Active Substance: AZACITIDINE
     Indication: PRODUCT USED FOR UNKNOWN INDICATION
     Dosage: 125 MILLIGRAM
     Route: 058
     Dates: start: 20180721, end: 20180723

REACTIONS (21)
  - Constipation [Recovered/Resolved]
  - Ecchymosis [Not Recovered/Not Resolved]
  - Diarrhoea [Recovered/Resolved]
  - Cardiomyopathy [Unknown]
  - Pleural effusion [Not Recovered/Not Resolved]
  - Constipation [Recovered/Resolved]
  - Nausea [Recovered/Resolved]
  - Dyspnoea [Recovered/Resolved]
  - Pyrexia [Recovered/Resolved]
  - Septic shock [Fatal]
  - Myocardial ischaemia [Unknown]
  - Hypoalbuminaemia [Not Recovered/Not Resolved]
  - Nausea [Recovered/Resolved]
  - Pyrexia [Recovered/Resolved]
  - Haemoptysis [Not Recovered/Not Resolved]
  - Insomnia [Recovered/Resolved]
  - Electrolyte imbalance [Not Recovered/Not Resolved]
  - Paraesthesia [Not Recovered/Not Resolved]
  - Bacterial infection [Recovered/Resolved]
  - Hypokalaemia [Recovered/Resolved]
  - Hypokalaemia [Unknown]

NARRATIVE: CASE EVENT DATE: 20180724
